FAERS Safety Report 4401106-3 (Version None)
Quarter: 2004Q3

REPORT INFORMATION
  Report Type: 
  Country: None (occurrence: None)
  Receive Date: 20040907
  Receipt Date: 20031103
  Transmission Date: 20050211
  Serious: No
  Sender: FDA-Public Use
  Company Number: US-BRISTOL-MYERS SQUIBB COMPANY-12425344

PATIENT
  Age: 57 Year
  Sex: Male
  Weight: 180 kg

DRUGS (1)
  1. COUMADIN [Suspect]
     Indication: THROMBOSIS
     Dosage: 5 MG FIVE DAYS/WEEK AND 2.5 MG TWO DAYS/WEEK.
     Route: 048
     Dates: start: 20000501

REACTIONS (1)
  - HEPATIC ENZYME INCREASED [None]
